FAERS Safety Report 24153696 (Version 2)
Quarter: 2024Q3

REPORT INFORMATION
  Report Type: Spontaneous
  Country: BR (occurrence: BR)
  Receive Date: 20240730
  Receipt Date: 20240819
  Transmission Date: 20241016
  Serious: Yes (Other)
  Sender: ALEXION PHARMACEUTICALS
  Company Number: BR-AstraZeneca-CH-00670286A

PATIENT
  Age: 7 Year
  Sex: Female

DRUGS (1)
  1. SOLIRIS [Suspect]
     Active Substance: ECULIZUMAB
     Indication: Atypical haemolytic uraemic syndrome
     Dosage: UNK
     Route: 065
     Dates: start: 201806

REACTIONS (3)
  - Atypical haemolytic uraemic syndrome [Unknown]
  - Condition aggravated [Unknown]
  - Thrombotic microangiopathy [Unknown]
